FAERS Safety Report 10692939 (Version 1)
Quarter: 2015Q1

REPORT INFORMATION
  Report Type: Spontaneous
  Country: GB (occurrence: None)
  Receive Date: 20150105
  Receipt Date: 20150105
  Transmission Date: 20150720
  Serious: Yes (Hospitalization, Disabling)
  Sender: FDA-Public Use
  Company Number: None

PATIENT
  Age: 32 Year
  Sex: Female

DRUGS (1)
  1. CITALOPRAM [Suspect]
     Active Substance: CITALOPRAM HYDROBROMIDE
     Dosage: 1 PILL PER DAY ONCE DAILY BY MOUTH
     Route: 048

REACTIONS (7)
  - Paraesthesia [None]
  - Dizziness [None]
  - Drug withdrawal syndrome [None]
  - Feeling abnormal [None]
  - Drug tolerance [None]
  - Malaise [None]
  - Suicidal ideation [None]

NARRATIVE: CASE EVENT DATE: 19791103
